FAERS Safety Report 12898506 (Version 1)
Quarter: 2016Q4

REPORT INFORMATION
  Report Type: Spontaneous
  Country: US (occurrence: US)
  Receive Date: 20161031
  Receipt Date: 20161031
  Transmission Date: 20170207
  Serious: No
  Sender: FDA-Public Use
  Company Number: US-009507513-1610USA011823

PATIENT
  Age: 56 Year
  Sex: Male

DRUGS (2)
  1. INTRON A [Suspect]
     Active Substance: INTERFERON ALFA-2B
  2. INTRON A [Suspect]
     Active Substance: INTERFERON ALFA-2B

REACTIONS (2)
  - Rash [Not Recovered/Not Resolved]
  - Incorrect product formulation administered [Unknown]
